FAERS Safety Report 17454205 (Version 1)
Quarter: 2020Q1

REPORT INFORMATION
  Report Type: Spontaneous
  Country: US (occurrence: US)
  Receive Date: 20200224
  Receipt Date: 20200224
  Transmission Date: 20200409
  Serious: Yes (Hospitalization)
  Sender: FDA-Public Use
  Company Number: None

PATIENT
  Age: 47 Year
  Sex: Female
  Weight: 56.25 kg

DRUGS (9)
  1. CARBOPLATIN. [Concomitant]
     Active Substance: CARBOPLATIN
     Dates: start: 20190625, end: 20191007
  2. PALONSETRON 0.25MG [Concomitant]
     Dates: start: 20191010, end: 20191018
  3. DOCETAXEL. [Suspect]
     Active Substance: DOCETAXEL
     Indication: LUNG NEOPLASM MALIGNANT
     Dosage: ?          OTHER FREQUENCY:Q 2 WEEKS;?
     Route: 042
     Dates: start: 20200129
  4. DOCETAXEL. [Suspect]
     Active Substance: DOCETAXEL
     Indication: LUNG CARCINOMA CELL TYPE UNSPECIFIED STAGE 0
     Dosage: ?          OTHER FREQUENCY:Q 2 WEEKS;?
     Route: 042
     Dates: start: 20200129
  5. GRANISETRON 0.7MG [Concomitant]
     Dates: start: 20191010, end: 20191018
  6. ALIMTA 800 MG [Concomitant]
     Dates: start: 20190626, end: 20200121
  7. DOCETAXEL. [Suspect]
     Active Substance: DOCETAXEL
     Indication: LUNG NEOPLASM MALIGNANT
     Dosage: ?          OTHER FREQUENCY:Q 2 WEEKS;?
     Route: 042
     Dates: start: 20200129
  8. KEYTRUDA 200MG [Concomitant]
     Dates: start: 20190625, end: 20200121
  9. EMEND 150MG [Concomitant]
     Dates: start: 20190625, end: 20191007

REACTIONS (1)
  - Hospice care [None]
